FAERS Safety Report 9187508 (Version 1)
Quarter: 2013Q1

REPORT INFORMATION
  Report Type: Spontaneous
  Country: ES (occurrence: ES)
  Receive Date: 20130325
  Receipt Date: 20130325
  Transmission Date: 20140127
  Serious: Yes (Death, Hospitalization)
  Sender: FDA-Public Use
  Company Number: ES-ELI_LILLY_AND_COMPANY-ES201303008034

PATIENT
  Age: 83 Year
  Sex: Male

DRUGS (1)
  1. FORSTEO [Suspect]
     Dosage: UNK, UNKNOWN
     Route: 065
     Dates: start: 201107

REACTIONS (3)
  - Death [Fatal]
  - Bronchial disorder [Unknown]
  - Pneumonia [Unknown]
